FAERS Safety Report 18058436 (Version 1)
Quarter: 2020Q3

REPORT INFORMATION
  Report Type: Other
  Country: DE (occurrence: DE)
  Receive Date: 20200723
  Receipt Date: 20200723
  Transmission Date: 20201103
  Serious: Yes (Other)
  Sender: FDA-Public Use
  Company Number: DE-ROCHE-2646483

PATIENT

DRUGS (3)
  1. RITUXIMAB. [Suspect]
     Active Substance: RITUXIMAB
     Indication: B-CELL LYMPHOMA
     Route: 042
  2. BENDAMUSTINE [Suspect]
     Active Substance: BENDAMUSTINE
     Indication: B-CELL LYMPHOMA
     Route: 042
  3. TEMSIROLIMUS. [Suspect]
     Active Substance: TEMSIROLIMUS
     Indication: B-CELL LYMPHOMA
     Route: 042

REACTIONS (17)
  - Leukopenia [Unknown]
  - Lymphopenia [Unknown]
  - Mucosal inflammation [Unknown]
  - Rash [Unknown]
  - Vomiting [Unknown]
  - Fatigue [Unknown]
  - Infection [Unknown]
  - Hyperglycaemia [Unknown]
  - Hypokalaemia [Unknown]
  - Dyspnoea [Unknown]
  - Anaemia [Unknown]
  - Neutropenia [Unknown]
  - Rash pruritic [Unknown]
  - Thrombocytopenia [Unknown]
  - Dysphagia [Unknown]
  - Stomatitis [Unknown]
  - Decreased appetite [Unknown]
